FAERS Safety Report 7950294-0 (Version None)
Quarter: 2011Q4

REPORT INFORMATION
  Report Type: 
  Country: None (occurrence: None)
  Receive Date: 20111130
  Receipt Date: 20111121
  Transmission Date: 20120403
  Serious: Yes (Other)
  Sender: FDA-Public Use
  Company Number: CA-ASTRAZENECA-2011SE71080

PATIENT
  Age: 73 Year
  Sex: Female

DRUGS (6)
  1. NEXIUM [Suspect]
     Route: 048
     Dates: start: 20111001
  2. CLOPIDOGREL [Concomitant]
     Dates: start: 20110512
  3. NEXIUM [Suspect]
     Indication: OESOPHAGEAL DISORDER
     Dosage: GENERIC
     Route: 048
  4. NEXIUM [Suspect]
     Route: 048
     Dates: end: 20111001
  5. ATORVASTATIN [Concomitant]
     Dates: start: 20110512
  6. ASPIRIN [Concomitant]
     Dates: start: 20110512

REACTIONS (2)
  - CORONARY ARTERY OCCLUSION [None]
  - WRONG TECHNIQUE IN DRUG USAGE PROCESS [None]
